FAERS Safety Report 6899348-0 (Version None)
Quarter: 2010Q3

REPORT INFORMATION
  Report Type: 
  Country: None (occurrence: None)
  Receive Date: 20100803
  Receipt Date: 20090408
  Transmission Date: 20110219
  Serious: No
  Sender: FDA-Public Use
  Company Number: US-PFIZER INC-2009175182

PATIENT
  Sex: Female
  Weight: 95.2 kg

DRUGS (5)
  1. GABAPENTIN [Suspect]
     Indication: TRIGEMINAL NEURALGIA
     Dosage: 600 MG, 3X/DAY
     Route: 048
     Dates: start: 20090101
  2. COZAAR [Concomitant]
     Dosage: UNK
  3. VYTORIN [Concomitant]
     Dosage: UNK
  4. GLIPIZIDE [Concomitant]
     Dosage: UNK
  5. GABAPENTIN [Concomitant]
     Dosage: UNK
     Dates: start: 20080501, end: 20090101

REACTIONS (2)
  - INCORRECT DOSE ADMINISTERED [None]
  - PAIN [None]
